FAERS Safety Report 5722561-2 (Version None)
Quarter: 2008Q2

REPORT INFORMATION
  Report Type: 
  Country: None (occurrence: None)
  Receive Date: 20080429
  Receipt Date: 20071129
  Transmission Date: 20081010
  Serious: No
  Sender: FDA-Public Use
  Company Number: US-ASTRAZENECA-2007UW27348

PATIENT
  Sex: Female

DRUGS (1)
  1. NEXIUM [Suspect]
     Dosage: EVENT ONSET 2-3 DAYS AFTER START OF TREATMENT

REACTIONS (2)
  - DRY MOUTH [None]
  - GINGIVITIS [None]
